FAERS Safety Report 8170173-6 (Version None)
Quarter: 2012Q1

REPORT INFORMATION
  Report Type: 
  Country: None (occurrence: None)
  Receive Date: 20120228
  Receipt Date: 20120221
  Transmission Date: 20120608
  Serious: Yes (Other)
  Sender: FDA-Public Use
  Company Number: PHHY2012DE015746

PATIENT
  Age: 23 Year
  Sex: Female

DRUGS (3)
  1. OXCARBAZEPINE [Suspect]
     Indication: EPILEPSY
     Dosage: 600 MG, BID
     Dates: start: 20090628, end: 20100208
  2. FOLIC ACID [Concomitant]
     Indication: PROPHYLAXIS OF NEURAL TUBE DEFECT
  3. ARIPIPRAZOLE [Suspect]
     Indication: BORDERLINE PERSONALITY DISORDER
     Dosage: 10 MG, QD
     Dates: start: 20090628, end: 20100208

REACTIONS (3)
  - MATERNAL EXPOSURE DURING PREGNANCY [None]
  - PREMATURE DELIVERY [None]
  - PREMATURE SEPARATION OF PLACENTA [None]
